FAERS Safety Report 4329577-1 (Version None)
Quarter: 2004Q2

REPORT INFORMATION
  Report Type: 
  Country: None (occurrence: None)
  Receive Date: 20040401
  Receipt Date: 20031205
  Transmission Date: 20050107
  Serious: Yes (Other)
  Sender: FDA-Public Use
  Company Number: DE-ROCHE-353557

PATIENT
  Age: 39 Year
  Sex: Male
  Weight: 78 kg

DRUGS (10)
  1. PEG-INTERFERON ALFA 2A (RO 25-8310) [Suspect]
     Dosage: TAKEN WEEKLY
     Route: 065
     Dates: start: 20030905, end: 20031128
  2. CALCIUMACETAT-NEFRO [Concomitant]
     Dates: start: 19950801
  3. DREISAVIT [Concomitant]
     Dates: start: 19950801
  4. FOLSAURE [Concomitant]
  5. IBUHEXAL [Concomitant]
  6. ERYPO [Concomitant]
     Dosage: STOPPED ON 17 SEP 2003 AND RESTARTED ON 18 SEP 2003 AT 2 PER WEEK.
     Dates: start: 19950801
  7. FERRLECIT [Concomitant]
     Dates: start: 19950801
  8. TESTOSTERON-DEPOT [Concomitant]
     Indication: HYPOGONADISM
     Dates: start: 19970101
  9. NORFLOXACIN [Concomitant]
     Indication: BRONCHITIS
     Dates: start: 20030904, end: 20030913
  10. METAMIZOL [Concomitant]
     Dates: start: 20030916

REACTIONS (4)
  - EPILEPSY [None]
  - GASTRIC DISORDER [None]
  - GRAND MAL CONVULSION [None]
  - TONGUE BITING [None]
